FAERS Safety Report 22924848 (Version 2)
Quarter: 2023Q4

REPORT INFORMATION
  Report Type: Spontaneous
  Country: US (occurrence: US)
  Receive Date: 20230908
  Receipt Date: 20231005
  Transmission Date: 20240110
  Serious: No
  Sender: FDA-Public Use
  Company Number: US-BRISTOL-MYERS SQUIBB COMPANY-2023-127359

PATIENT
  Age: 72 Year
  Sex: Male
  Weight: 73.94 kg

DRUGS (1)
  1. REVLIMID [Suspect]
     Active Substance: LENALIDOMIDE
     Indication: Plasma cell myeloma
     Dosage: FREQUENCY: 2WKS ON, 1WK OFF
     Route: 048

REACTIONS (4)
  - Fatigue [Unknown]
  - Pruritus [Unknown]
  - Off label use [Unknown]
  - Arthritis [Unknown]
